FAERS Safety Report 16823635 (Version 2)
Quarter: 2019Q4

REPORT INFORMATION
  Report Type: Report from Study
  Country: JP (occurrence: JP)
  Receive Date: 20190918
  Receipt Date: 20191015
  Transmission Date: 20200122
  Serious: Yes (Other)
  Sender: FDA-Public Use
  Company Number: JP-ASTRAZENECA-2019SF00884

PATIENT
  Age: 25066 Day
  Sex: Female
  Weight: 51 kg

DRUGS (2)
  1. IMFINZI [Suspect]
     Active Substance: DURVALUMAB
     Indication: NON-SMALL CELL LUNG CANCER
     Route: 041
     Dates: start: 20190517, end: 20190614
  2. IMFINZI [Suspect]
     Active Substance: DURVALUMAB
     Indication: NON-SMALL CELL LUNG CANCER
     Route: 041
     Dates: start: 20190726

REACTIONS (4)
  - Hypothyroidism [Not Recovered/Not Resolved]
  - Dermatitis bullous [Recovered/Resolved]
  - Pruritus [Recovered/Resolved]
  - Radiation pneumonitis [Recovered/Resolved]

NARRATIVE: CASE EVENT DATE: 20190628
